FAERS Safety Report 21146825 (Version 1)
Quarter: 2022Q3

REPORT INFORMATION
  Report Type: Spontaneous
  Country: CN (occurrence: CN)
  Receive Date: 20220729
  Receipt Date: 20220729
  Transmission Date: 20221026
  Serious: Yes (Hospitalization, Other)
  Sender: FDA-Public Use
  Company Number: CN-MSNLABS-2022MSNLIT00867

PATIENT

DRUGS (9)
  1. PACLITAXEL [Suspect]
     Active Substance: PACLITAXEL
     Indication: Non-small cell lung cancer
     Dosage: 156MG/M2, CYCLE 1
     Route: 065
     Dates: start: 20211224
  2. PACLITAXEL [Suspect]
     Active Substance: PACLITAXEL
     Dosage: 156MG/M2, CYCLE 2
     Route: 065
     Dates: start: 20220117
  3. PACLITAXEL [Suspect]
     Active Substance: PACLITAXEL
     Dosage: 156MG/M2, CYCLE 3
     Route: 065
     Dates: start: 20220208
  4. CARBOPLATIN [Suspect]
     Active Substance: CARBOPLATIN
     Indication: Non-small cell lung cancer
     Dosage: CYCLE 1
     Route: 065
     Dates: start: 20211224
  5. CARBOPLATIN [Suspect]
     Active Substance: CARBOPLATIN
     Dosage: CYCLE 2
     Route: 065
     Dates: start: 20220117
  6. CARBOPLATIN [Suspect]
     Active Substance: CARBOPLATIN
     Dosage: CYCLE 3
     Route: 065
     Dates: start: 20220208
  7. PEMBROLIZUMAB [Suspect]
     Active Substance: PEMBROLIZUMAB
     Indication: Non-small cell lung cancer
     Dosage: CYCLE 1
     Route: 065
     Dates: start: 20211224
  8. PEMBROLIZUMAB [Suspect]
     Active Substance: PEMBROLIZUMAB
     Dosage: CYCLE 2
     Route: 065
     Dates: start: 20220117
  9. METHYLPREDNISOLONE [Concomitant]
     Active Substance: METHYLPREDNISOLONE
     Dosage: FOR 3 DAYS REDUCED BY 5 MG PER 3 DAYS
     Route: 065
     Dates: start: 20220130

REACTIONS (3)
  - Therapy partial responder [Unknown]
  - Enterocolitis [Recovering/Resolving]
  - Interstitial lung disease [Unknown]
